FAERS Safety Report 9441521 (Version 1)
Quarter: 2013Q3

REPORT INFORMATION
  Report Type: Spontaneous
  Country: IT (occurrence: IT)
  Receive Date: 20130805
  Receipt Date: 20130805
  Transmission Date: 20140515
  Serious: Yes (Other)
  Sender: FDA-Public Use
  Company Number: IT-MYLANLABS-2013S1016613

PATIENT
  Age: 64 Year
  Sex: Male

DRUGS (1)
  1. AZITHROMYCIN [Suspect]
     Indication: ORAL BACTERIAL INFECTION
     Route: 048
     Dates: start: 20130708, end: 20130708

REACTIONS (6)
  - Abdominal pain [Unknown]
  - Asthenia [Unknown]
  - Suffocation feeling [Unknown]
  - Dizziness [Unknown]
  - Headache [Unknown]
  - Nausea [Unknown]
